FAERS Safety Report 7222647-X (Version None)
Quarter: 2011Q1

REPORT INFORMATION
  Report Type: 
  Country: None (occurrence: None)
  Receive Date: 20110106
  Receipt Date: 20110106
  Transmission Date: 20110831
  Serious: Yes (Hospitalization, Other)
  Sender: FDA-Public Use
  Company Number: None

PATIENT
  Age: 59 Year
  Sex: Male
  Weight: 82 kg

DRUGS (1)
  1. GAMUNEX [Suspect]
     Indication: EVANS SYNDROME
     Dosage: 90 G IV DAILY X 3
     Route: 042
     Dates: start: 20101129, end: 20101201

REACTIONS (2)
  - HAEMOLYSIS [None]
  - RENAL FAILURE [None]
